FAERS Safety Report 5938623-0 (Version None)
Quarter: 2008Q4

REPORT INFORMATION
  Report Type: 
  Country: None (occurrence: None)
  Receive Date: 20081103
  Receipt Date: 20081020
  Transmission Date: 20090506
  Serious: Yes (Other)
  Sender: FDA-Public Use
  Company Number: IT-ROCHE-594292

PATIENT
  Age: 44 Year
  Sex: Male

DRUGS (11)
  1. MYCOPHENOLATE MOFETIL [Suspect]
     Indication: IMMUNOSUPPRESSION
     Dosage: X 3
     Route: 065
  2. SULFAMETHOXAZOLE AND TRIMETHOPRIM [Suspect]
     Route: 048
  3. PEG-INTERFERON ALFA NOS [Suspect]
     Indication: HEPATITIS C
     Route: 065
  4. RIBAVIRIN [Suspect]
     Indication: HEPATITIS C
     Route: 065
  5. CYCLOSPORINE [Suspect]
     Indication: PROPHYLAXIS
     Route: 065
  6. STEROID NOS [Suspect]
     Indication: PROPHYLAXIS
     Route: 065
  7. TACROLIMUS [Suspect]
     Indication: PROPHYLAXIS
     Route: 065
  8. TENOFOVIR [Suspect]
     Indication: HIV INFECTION
     Route: 065
  9. EMTRICITABINE [Suspect]
     Indication: HIV INFECTION
     Route: 065
  10. ATAZANAVIR SULFATE [Suspect]
     Indication: HIV INFECTION
     Route: 065
  11. FLUCONAZOLE [Concomitant]
     Indication: ORAL CANDIDIASIS

REACTIONS (9)
  - DISEASE RECURRENCE [None]
  - DRUG INTERACTION [None]
  - ESCHERICHIA INFECTION [None]
  - HEPATIC FAILURE [None]
  - HEPATITIS C [None]
  - HIV INFECTION [None]
  - LIVER TRANSPLANT REJECTION [None]
  - LUNG INFECTION [None]
  - MYOCARDIAL INFARCTION [None]
